FAERS Safety Report 9280980 (Version 1)
Quarter: 2013Q2

REPORT INFORMATION
  Report Type: Report from Study
  Country: DE (occurrence: DE)
  Receive Date: 20130509
  Receipt Date: 20130509
  Transmission Date: 20140414
  Serious: Yes (Hospitalization, Other)
  Sender: FDA-Public Use
  Company Number: DE-BAYER-2013-038012

PATIENT
  Age: 48 Year
  Sex: Male
  Weight: 50.5 kg

DRUGS (8)
  1. REGORAFENIB [Suspect]
     Indication: GASTROINTESTINAL STROMAL CANCER
     Dosage: 160 MG, QD
     Route: 048
     Dates: start: 20130307, end: 20130321
  2. IBUPROFEN [Concomitant]
     Indication: PAIN
     Dosage: 2400 MG DAILY
     Route: 048
  3. HYDROMORPHONE [Concomitant]
     Indication: PAIN
     Dosage: 16 MG DAILY
     Route: 048
  4. HYDROMORPHONE [Concomitant]
     Indication: PAIN
     Dosage: 24 MG DAILY
     Route: 048
  5. PANTOPRAZOLE [Concomitant]
     Indication: PROPHYLAXIS
     Dosage: 80 MG DAILY
  6. METOCLOPRAMIDE [Concomitant]
     Indication: NAUSEA
     Dosage: 30 MG DAILY
     Route: 048
  7. TEGRETAL [Concomitant]
     Indication: HICCUPS
     Dosage: 600 MG DAILY
     Route: 048
  8. NOVAMINSULFON [Concomitant]
     Indication: PAIN
     Dosage: 2500 MG DAILY
     Route: 048

REACTIONS (5)
  - Hyperbilirubinaemia [Recovered/Resolved]
  - Thrombocytopenia [Recovered/Resolved]
  - Diarrhoea [Recovered/Resolved]
  - Dehydration [Recovered/Resolved]
  - Asthenia [Recovered/Resolved]
